FAERS Safety Report 4914226-1 (Version None)
Quarter: 2006Q1

REPORT INFORMATION
  Report Type: 
  Country: None (occurrence: None)
  Receive Date: 20060113
  Receipt Date: 20051111
  Transmission Date: 20060701
  Serious: Yes (Other)
  Sender: FDA-Public Use
  Company Number: 2005SP003940

PATIENT
  Sex: Female

DRUGS (2)
  1. LUNESTA [Suspect]
     Dosage: 28 MG; 1X; ORAL
     Route: 048
     Dates: start: 20050101
  2. ANTIDEPRESSANTS [Concomitant]

REACTIONS (1)
  - SUICIDE ATTEMPT [None]
